FAERS Safety Report 19114802 (Version 7)
Quarter: 2024Q1

REPORT INFORMATION
  Report Type: Report from Study
  Country: US (occurrence: US)
  Receive Date: 20210408
  Receipt Date: 20240221
  Transmission Date: 20240410
  Serious: Yes (Other)
  Sender: FDA-Public Use
  Company Number: US-ABBVIE-21K-163-3802407-00

PATIENT
  Sex: Male
  Weight: 74.797 kg

DRUGS (7)
  1. HUMIRA [Suspect]
     Active Substance: ADALIMUMAB
     Indication: Ankylosing spondylitis
     Dosage: CITRATE FREE
     Route: 058
  2. HUMIRA [Suspect]
     Active Substance: ADALIMUMAB
     Dosage: CITRATE FREE
     Route: 058
  3. HUMIRA [Suspect]
     Active Substance: ADALIMUMAB
     Dosage: CITRATE FREE , STRENGTH- 40 MG
     Route: 058
  4. PFIZER-BIONTECH COVID-19 VACCINE [Suspect]
     Active Substance: TOZINAMERAN
     Indication: COVID-19 immunisation
     Dosage: 1ST DOSE FREQUENCY ONE IN ONCE
     Route: 030
     Dates: start: 20210304, end: 20210304
  5. PFIZER-BIONTECH COVID-19 VACCINE [Suspect]
     Active Substance: TOZINAMERAN
     Indication: COVID-19 immunisation
     Dosage: 2ND DOSE FREQUENCY ONE IN ONCE
     Route: 030
     Dates: start: 20210325, end: 20210325
  6. XOLAIR [Concomitant]
     Active Substance: OMALIZUMAB
     Indication: Product used for unknown indication
  7. JANSSEN COVID-19 VACCINE [Concomitant]
     Active Substance: AD26.COV2.S
     Indication: COVID-19 immunisation
     Dosage: BOOSTER DOSE FREQUENCY ONE IN ONCE
     Route: 030

REACTIONS (15)
  - Deafness [Recovering/Resolving]
  - COVID-19 [Recovered/Resolved]
  - Pneumonia [Recovered/Resolved]
  - Allergic oedema [Recovering/Resolving]
  - Ankylosing spondylitis [Recovered/Resolved]
  - Vaccination site swelling [Recovering/Resolving]
  - Vertigo [Recovering/Resolving]
  - Peripheral swelling [Recovering/Resolving]
  - Hypertension [Recovering/Resolving]
  - COVID-19 [Recovered/Resolved]
  - Tinnitus [Recovering/Resolving]
  - Migraine [Recovering/Resolving]
  - Dermatitis allergic [Recovering/Resolving]
  - Therapeutic response shortened [Recovered/Resolved]
  - Tinnitus [Not Recovered/Not Resolved]

NARRATIVE: CASE EVENT DATE: 20210101
